FAERS Safety Report 9721881 (Version 1)
Quarter: 2013Q4

REPORT INFORMATION
  Report Type: Spontaneous
  Country: US (occurrence: US)
  Receive Date: 20131201
  Receipt Date: 20131201
  Transmission Date: 20140711
  Serious: No
  Sender: FDA-Public Use
  Company Number: US-009507513-1311USA010940

PATIENT
  Sex: Female

DRUGS (1)
  1. REMERON [Suspect]
     Dosage: UNK
     Route: 048
     Dates: start: 201211, end: 201302

REACTIONS (1)
  - Drug ineffective [Recovered/Resolved]
